FAERS Safety Report 20071040 (Version 3)
Quarter: 2022Q2

REPORT INFORMATION
  Report Type: Report from Study
  Country: US (occurrence: US)
  Receive Date: 20211115
  Receipt Date: 20220521
  Transmission Date: 20220721
  Serious: Yes (Other)
  Sender: FDA-Public Use
  Company Number: US-NOVARTISPH-NVSC2021US258308

PATIENT
  Sex: Male

DRUGS (1)
  1. ENTRESTO [Suspect]
     Active Substance: SACUBITRIL\VALSARTAN
     Indication: Cardiac failure congestive
     Dosage: 1 DOSAGE FORM, BID
     Route: 048

REACTIONS (7)
  - Diabetes mellitus [Unknown]
  - Alcohol poisoning [Unknown]
  - Arthralgia [Unknown]
  - Mobility decreased [Recovering/Resolving]
  - Sciatica [Not Recovered/Not Resolved]
  - Lip injury [Unknown]
  - Fall [Not Recovered/Not Resolved]
